FAERS Safety Report 8514192-6 (Version None)
Quarter: 2012Q3

REPORT INFORMATION
  Report Type: 
  Country: None (occurrence: None)
  Receive Date: 20120717
  Receipt Date: 20120712
  Transmission Date: 20120928
  Serious: Yes (Hospitalization, Other)
  Sender: FDA-Public Use
  Company Number: FR-PFIZER INC-2012165120

PATIENT
  Age: 71 Year
  Sex: Female

DRUGS (3)
  1. RAMIPRIL [Suspect]
     Indication: HYPERTENSION
     Dosage: 1 DF, DAILY
     Route: 048
     Dates: start: 20110101, end: 20120301
  2. LAMICTAL [Interacting]
     Indication: EPILEPSY
     Dosage: 200 MG, DAILY
     Route: 048
  3. CARBAMAZEPINE [Interacting]
     Indication: EPILEPSY
     Dosage: 800 MG, DAILY
     Route: 048

REACTIONS (3)
  - DRUG INTERACTION [None]
  - EPILEPSY [None]
  - COUGH [None]
